FAERS Safety Report 9412279 (Version 1)
Quarter: 2013Q3

REPORT INFORMATION
  Report Type: Report from Study
  Country: CN (occurrence: CN)
  Receive Date: 20130722
  Receipt Date: 20130722
  Transmission Date: 20140515
  Serious: Yes (Other)
  Sender: FDA-Public Use
  Company Number: CN-ROCHE-1250939

PATIENT
  Age: 44 Year
  Sex: Female

DRUGS (6)
  1. CELLCEPT [Suspect]
     Indication: LIVER TRANSPLANT
     Route: 048
     Dates: start: 20050201
  2. CELLCEPT [Suspect]
     Route: 048
  3. CELLCEPT [Suspect]
     Route: 048
  4. CELLCEPT [Suspect]
     Route: 048
     Dates: end: 201306
  5. CELLCEPT [Suspect]
     Dosage: MORNING: 3MG, EVENING: 2.75MG
     Route: 048
     Dates: start: 201306
  6. PROGRAF [Concomitant]
     Indication: LIVER TRANSPLANT
     Route: 048
     Dates: start: 20050201

REACTIONS (3)
  - Transaminases increased [Not Recovered/Not Resolved]
  - Transplant rejection [Not Recovered/Not Resolved]
  - Haemoglobin decreased [Not Recovered/Not Resolved]
